FAERS Safety Report 8412131-X (Version None)
Quarter: 2012Q2

REPORT INFORMATION
  Report Type: 
  Country: None (occurrence: None)
  Receive Date: 20120605
  Receipt Date: 20120507
  Transmission Date: 20120825
  Serious: Yes (Other)
  Sender: FDA-Public Use
  Company Number: US-AMGEN-USASP2012013756

PATIENT
  Age: 63 Year
  Sex: Female
  Weight: 99.773 kg

DRUGS (1)
  1. ENBREL [Suspect]
     Indication: PSORIASIS
     Dosage: 50 MG, 2 TIMES/WK
     Route: 030
     Dates: start: 20120212, end: 20120221

REACTIONS (3)
  - LIP PAIN [None]
  - SWELLING FACE [None]
  - ANGIOEDEMA [None]
